FAERS Safety Report 10171161 (Version 1)
Quarter: 2014Q2

REPORT INFORMATION
  Report Type: Spontaneous
  Country: US (occurrence: None)
  Receive Date: 20140428
  Receipt Date: 20140428
  Transmission Date: 20141212
  Serious: No
  Sender: FDA-Public Use
  Company Number: PHHY2014US010426

PATIENT
  Age: 47 Year
  Sex: Female

DRUGS (23)
  1. GILENYA (FINGOLIMOD) CAPSULE, 0.5MG [Suspect]
     Indication: RELAPSING-REMITTING MULTIPLE SCLEROSIS
     Route: 048
     Dates: start: 20110105, end: 20131218
  2. ASPIRIN (ACETYSALICYLIC ACID) [Concomitant]
  3. CYCLOBENZAPRINE (CYCLOBENZAPRINE) [Concomitant]
  4. CYMBALTA [Concomitant]
  5. DIAZEPAM (DIAZEPAM) [Concomitant]
  6. DOXYCYCLINE MONOHYDRATE (DOXYCYCLINE MONOHYDRATE) [Concomitant]
  7. MELOXICAM (MELOXICAM) [Concomitant]
  8. TRAMADOL HCL (TRAMADOL HYDROCHLORIDE) [Concomitant]
  9. VITAMIN B12 (CYANOCOBALAMIN) [Concomitant]
  10. PSEUDOEPHEDRINE HYDROCHLORIDE (PSEUDOEPHEDRINE HYDROCHLORIDE) [Concomitant]
  11. VITAMIN B COMPLEX (VITAMIN B COMPLEX) [Concomitant]
  12. DIPHENHYDRAMINE HCL (DIPHENHYDRAMINE HYDROCHLORIDE) [Concomitant]
  13. CHLORPHENIRAMINE MALEATE (CHLORPHENAMINE MALEATE) [Concomitant]
  14. PHENYLEPHRINE HCL (PHENYLEPHRINE HYDROCHLORIDE) [Concomitant]
  15. POLYETHYLENE GLYCOL (MACROGOL) [Concomitant]
  16. VITAMIN D3 (COLECALCIFEROL) [Concomitant]
  17. FLEXERIL (CYCLOBENZAPRINE HYDROCHLORIDE) [Concomitant]
  18. MIRALAX (MACROGOL) [Concomitant]
  19. BENADRYL ITCH (DIPHENHYDRAMINE HYDROCHLORIDE) [Concomitant]
  20. ZOFRAN (ONDANSETRON HYDROCHLORIDE) [Concomitant]
  21. XANAX (ALPRAZOLAM) [Concomitant]
  22. LORTAB (HYDROCODONE BITARTRATE, PARACETAMOL) [Concomitant]
  23. VITAMIN D (ERGOCALCIFEROL) CAPSULE [Concomitant]

REACTIONS (1)
  - Chest pain [None]
